FAERS Safety Report 20046962 (Version 3)
Quarter: 2021Q4

REPORT INFORMATION
  Report Type: Other
  Country: JP (occurrence: None)
  Receive Date: 20211109
  Receipt Date: 20211125
  Transmission Date: 20220304
  Serious: Yes (Other)
  Sender: FDA-Public Use
  Company Number: JP-ROCHE-2948988

PATIENT

DRUGS (3)
  1. BEVACIZUMAB [Suspect]
     Active Substance: BEVACIZUMAB
     Indication: Colorectal cancer metastatic
     Route: 042
  2. BEVACIZUMAB [Suspect]
     Active Substance: BEVACIZUMAB
     Route: 042
  3. TS-1 [Suspect]
     Active Substance: GIMERACIL\OTERACIL\TEGAFUR
     Indication: Colorectal cancer metastatic
     Dosage: 42-DAY CYCLE WITH TWICE-DAILY ORAL ADMINISTRATION OF S-1 DOSAGES ACCORDING TO BODY SURFACE AREA (BSA
     Route: 048

REACTIONS (5)
  - Colitis [Unknown]
  - Neutropenia [Unknown]
  - Hyperkalaemia [Unknown]
  - Hemianopia homonymous [Unknown]
  - Enterocolitis [Unknown]
